FAERS Safety Report 16541332 (Version 3)
Quarter: 2019Q3

REPORT INFORMATION
  Report Type: Spontaneous
  Country: CN (occurrence: CN)
  Receive Date: 20190708
  Receipt Date: 20190816
  Transmission Date: 20191004
  Serious: Yes (Other)
  Sender: FDA-Public Use
  Company Number: CN-ASTRAZENECA-2019SE96602

PATIENT
  Age: 64 Year
  Sex: Female
  Weight: 57.5 kg

DRUGS (2)
  1. IRESSA [Suspect]
     Active Substance: GEFITINIB
     Indication: NON-SMALL CELL LUNG CANCER
     Dosage: ONE PILL A DAY
     Route: 048
     Dates: start: 2017
  2. TAGRISSO [Concomitant]
     Active Substance: OSIMERTINIB

REACTIONS (5)
  - Malignant neoplasm progression [Unknown]
  - Pain [Unknown]
  - Drug resistance [Unknown]
  - Diarrhoea [Recovered/Resolved]
  - Pruritus [Recovered/Resolved]

NARRATIVE: CASE EVENT DATE: 2019
